FAERS Safety Report 21348680 (Version 14)
Quarter: 2023Q1

REPORT INFORMATION
  Report Type: Spontaneous
  Country: GB (occurrence: GB)
  Receive Date: 20220919
  Receipt Date: 20230119
  Transmission Date: 20230418
  Serious: Yes (Hospitalization, Other)
  Sender: FDA-Public Use
  Company Number: GB-MYLANLABS-2022M1090910

PATIENT
  Age: 62 Year
  Sex: Female

DRUGS (1)
  1. CLOZARIL [Suspect]
     Active Substance: CLOZAPINE
     Indication: Schizophrenia
     Dosage: UNK
     Route: 048
     Dates: start: 20220829

REACTIONS (8)
  - Blood glucose decreased [Unknown]
  - Thrombocytopenia [Not Recovered/Not Resolved]
  - Platelet count abnormal [Recovering/Resolving]
  - Platelet aggregation abnormal [Not Recovered/Not Resolved]
  - Full blood count abnormal [Unknown]
  - Monocyte count increased [Unknown]
  - Haematocrit decreased [Unknown]
  - Red blood cell count decreased [Not Recovered/Not Resolved]

NARRATIVE: CASE EVENT DATE: 20220830
